FAERS Safety Report 5272445-1 (Version None)
Quarter: 2007Q1

REPORT INFORMATION
  Report Type: 
  Country: None (occurrence: None)
  Receive Date: 20070322
  Receipt Date: 20070307
  Transmission Date: 20070707
  Serious: Yes (Hospitalization)
  Sender: FDA-Public Use
  Company Number: PHHO2006JP22019

PATIENT
  Age: 63 Year
  Sex: Male
  Weight: 56 kg

DRUGS (5)
  1. VALSARTAN AND HYDROCHLOROTHIAZIDE [Suspect]
     Indication: HYPERTENSION
     Dosage: 1DF
     Dates: start: 20060718, end: 20061226
  2. PREDONINE [Suspect]
     Dosage: 50 MG, QD
     Route: 048
     Dates: start: 20061231, end: 20070112
  3. PREDONINE [Suspect]
     Dosage: 40 MG, QD
     Route: 048
     Dates: start: 20070112, end: 20070123
  4. PREDONINE [Suspect]
     Dosage: 30 MG, QD
     Route: 048
     Dates: start: 20070123, end: 20070205
  5. PREDONINE [Suspect]
     Dosage: 20 MG, QD
     Route: 048
     Dates: start: 20070205

REACTIONS (7)
  - CONDITION AGGRAVATED [None]
  - DIABETES MELLITUS [None]
  - GAMMA-GLUTAMYLTRANSFERASE INCREASED [None]
  - HEPATIC FUNCTION ABNORMAL [None]
  - HYPERCHOLESTEROLAEMIA [None]
  - OCULAR DISCOMFORT [None]
  - VOGT-KOYANAGI-HARADA SYNDROME [None]
